FAERS Safety Report 21007239 (Version 1)
Quarter: 2022Q2

REPORT INFORMATION
  Report Type: Spontaneous
  Country: US (occurrence: US)
  Receive Date: 20220625
  Receipt Date: 20220625
  Transmission Date: 20220721
  Serious: No
  Sender: FDA-Public Use
  Company Number: US-BRISTOL-MYERS SQUIBB COMPANY-2022-050836

PATIENT
  Age: 65 Year
  Sex: Male

DRUGS (5)
  1. REVLIMID [Suspect]
     Active Substance: LENALIDOMIDE
     Indication: Plasma cell myeloma
     Dosage: FREQ-EVERY OTHER DAY
     Route: 048
     Dates: start: 20191217
  2. REVLIMID [Suspect]
     Active Substance: LENALIDOMIDE
  3. METOPROLOL [Concomitant]
     Active Substance: METOPROLOL
     Indication: Plasma cell myeloma
  4. METOPROLOL [Concomitant]
     Active Substance: METOPROLOL
  5. SYMBICORT [Concomitant]
     Active Substance: BUDESONIDE\FORMOTEROL FUMARATE DIHYDRATE
     Indication: Plasma cell myeloma

REACTIONS (2)
  - Diarrhoea [Unknown]
  - Constipation [Unknown]
